FAERS Safety Report 6682031-4 (Version None)
Quarter: 2010Q2

REPORT INFORMATION
  Report Type: 
  Country: None (occurrence: None)
  Receive Date: 20100414
  Receipt Date: 20100414
  Transmission Date: 20101027
  Serious: Yes (Other)
  Sender: FDA-Public Use
  Company Number: None

PATIENT
  Age: 62 Year
  Sex: Female
  Weight: 59.8748 kg

DRUGS (1)
  1. AMBIEN [Suspect]
     Indication: INSOMNIA
     Dosage: 1 PILL 1/NIGHT FOR 2 WKS PO
     Route: 048
     Dates: start: 20100405, end: 20100407

REACTIONS (7)
  - ABNORMAL BEHAVIOUR [None]
  - FEELING ABNORMAL [None]
  - IMPAIRED WORK ABILITY [None]
  - NIGHTMARE [None]
  - PSYCHOMOTOR HYPERACTIVITY [None]
  - RESTLESSNESS [None]
  - SLEEP DISORDER [None]
